FAERS Safety Report 20885339 (Version 1)
Quarter: 2022Q2

REPORT INFORMATION
  Report Type: Spontaneous
  Country: US (occurrence: US)
  Receive Date: 20220527
  Receipt Date: 20220527
  Transmission Date: 20220721
  Serious: Yes (Hospitalization)
  Sender: FDA-Public Use
  Company Number: US-Vifor Pharma-VIT-2022-02840

PATIENT
  Age: 54 Year
  Sex: Male
  Weight: 77.5 kg

DRUGS (2)
  1. VELPHORO [Suspect]
     Active Substance: SUCROFERRIC OXYHYDROXIDE
     Indication: Blood phosphorus decreased
     Route: 048
     Dates: start: 202106, end: 202205
  2. NEPHRO-VITE RX [Concomitant]

REACTIONS (10)
  - Intestinal obstruction [Recovering/Resolving]
  - Food intolerance [Recovering/Resolving]
  - Abdominal pain [Recovering/Resolving]
  - Vomiting [Recovering/Resolving]
  - Faeces soft [Recovering/Resolving]
  - Flatulence [Recovering/Resolving]
  - Diarrhoea [Recovering/Resolving]
  - Abnormal faeces [Recovering/Resolving]
  - Abdominal distension [Recovering/Resolving]
  - Nausea [Recovering/Resolving]
